FAERS Safety Report 9644282 (Version 2)
Quarter: 2013Q4

REPORT INFORMATION
  Report Type: Spontaneous
  Country: US (occurrence: US)
  Receive Date: 20131025
  Receipt Date: 20131108
  Transmission Date: 20140711
  Serious: Yes (Other)
  Sender: FDA-Public Use
  Company Number: US-ROCHE-1294238

PATIENT
  Age: 22 Year
  Sex: Female
  Weight: 61.29 kg

DRUGS (6)
  1. RITUXAN [Suspect]
     Indication: DERMATOMYOSITIS
     Route: 042
     Dates: start: 20131023, end: 20131023
  2. BENADRYL (UNITED STATES) [Suspect]
     Indication: PREMEDICATION
     Route: 042
     Dates: start: 20131023, end: 20131023
  3. METHOTREXATE [Concomitant]
     Indication: DERMATOMYOSITIS
     Route: 058
  4. PLAQUENIL [Concomitant]
     Indication: DERMATOMYOSITIS
     Route: 048
  5. PREDNISONE [Concomitant]
     Indication: DERMATOMYOSITIS
     Route: 048
  6. FOLIC ACID [Concomitant]
     Indication: DERMATOMYOSITIS
     Route: 048

REACTIONS (1)
  - Convulsion [Recovering/Resolving]
